FAERS Safety Report 6130069-8 (Version None)
Quarter: 2009Q1

REPORT INFORMATION
  Report Type: 
  Country: None (occurrence: None)
  Receive Date: 20090324
  Receipt Date: 20081119
  Transmission Date: 20090719
  Serious: Yes (Hospitalization)
  Sender: FDA-Public Use
  Company Number: FR-PFIZER INC-2005027998

PATIENT

DRUGS (7)
  1. SUNITINIB MALATE [Suspect]
     Indication: RENAL CELL CARCINOMA
     Dosage: 50 MG, DAILY, CYCLIC, 4 WEEKS/6
     Route: 048
     Dates: start: 20050121, end: 20060115
  2. SECTRAL [Concomitant]
     Indication: BREAST CANCER
     Route: 048
     Dates: start: 20050119
  3. APROVEL [Concomitant]
     Indication: BREAST CANCER
     Route: 048
     Dates: start: 20020101
  4. ISOPTIN [Concomitant]
     Route: 048
     Dates: start: 20020101
  5. LASIX [Concomitant]
     Route: 048
     Dates: start: 20050119
  6. LEVOTHYROXINE SODIUM [Concomitant]
     Route: 048
     Dates: start: 19990101
  7. ACETAMINOPHEN AND CODEINE PHOSPHATE [Concomitant]
     Route: 048
     Dates: start: 20041101

REACTIONS (1)
  - JAUNDICE [None]
